FAERS Safety Report 14855845 (Version 3)
Quarter: 2018Q2

REPORT INFORMATION
  Report Type: Spontaneous
  Country: DE (occurrence: DE)
  Receive Date: 20180507
  Receipt Date: 20180619
  Transmission Date: 20180711
  Serious: Yes (Death, Life-Threatening, Hospitalization)
  Sender: FDA-Public Use
  Company Number: DE-ANIPHARMA-2018-DE-000071

PATIENT
  Sex: Female
  Weight: 63 kg

DRUGS (4)
  1. ANASTROZOLE. [Suspect]
     Active Substance: ANASTROZOLE
     Indication: BREAST CANCER
     Dosage: 2.5MG
     Route: 048
     Dates: start: 201711, end: 20180411
  2. LETROZOLE. [Suspect]
     Active Substance: LETROZOLE
     Dosage: 2.5MG
     Route: 065
     Dates: start: 20171122, end: 20180404
  3. IMERON [Concomitant]
     Active Substance: IOMEPROL
     Dosage: 70ML
     Route: 065
     Dates: start: 20180411
  4. KISQALI [Suspect]
     Active Substance: RIBOCICLIB
     Dosage: 600MG
     Route: 048
     Dates: start: 20171122, end: 20180404

REACTIONS (18)
  - Dyspnoea exertional [Not Recovered/Not Resolved]
  - Cardiac failure [Not Recovered/Not Resolved]
  - Hepatic enzyme increased [Not Recovered/Not Resolved]
  - Venous occlusion [Not Recovered/Not Resolved]
  - Back pain [Not Recovered/Not Resolved]
  - Death [Not Recovered/Not Resolved]
  - Anaemia [Not Recovered/Not Resolved]
  - Ascites [Not Recovered/Not Resolved]
  - Fall [Not Recovered/Not Resolved]
  - Multiple organ dysfunction syndrome [Not Recovered/Not Resolved]
  - Pallor [Not Recovered/Not Resolved]
  - Rales [Not Recovered/Not Resolved]
  - Pleural effusion [Not Recovered/Not Resolved]
  - Blood pressure decreased [Not Recovered/Not Resolved]
  - Circulatory collapse [Not Recovered/Not Resolved]
  - Abdominal distension [Not Recovered/Not Resolved]
  - Urinary tract infection bacterial [Not Recovered/Not Resolved]
  - General physical health deterioration [Not Recovered/Not Resolved]

NARRATIVE: CASE EVENT DATE: 20180411
